FAERS Safety Report 14723468 (Version 1)
Quarter: 2018Q2

REPORT INFORMATION
  Report Type: Spontaneous
  Country: US (occurrence: US)
  Receive Date: 20180405
  Receipt Date: 20180405
  Transmission Date: 20180711
  Serious: No
  Sender: FDA-Public Use
  Company Number: US-MISSION PHARMACAL COMPANY-2045172

PATIENT
  Age: 69 Year
  Sex: Male

DRUGS (2)
  1. THIOLA [Suspect]
     Active Substance: TIOPRONIN
     Indication: NEPHROLITHIASIS
     Route: 065
     Dates: start: 20141024
  2. ADVIL [Concomitant]
     Active Substance: IBUPROFEN
     Route: 065

REACTIONS (5)
  - Hypersensitivity [Unknown]
  - Nasal congestion [Unknown]
  - Eye pruritus [Unknown]
  - Drug dose omission [Recovering/Resolving]
  - Headache [Unknown]
